FAERS Safety Report 8657626 (Version 3)
Quarter: 2013Q4

REPORT INFORMATION
  Report Type: Spontaneous
  Country: CA (occurrence: CA)
  Receive Date: 20120626
  Receipt Date: 20131031
  Transmission Date: 20140711
  Serious: Yes (Other)
  Sender: FDA-Public Use
  Company Number: CA-009507513-2012SP033268

PATIENT
  Age: 23 Year
  Sex: Male

DRUGS (2)
  1. SAPHRIS [Suspect]
     Indication: BIPOLAR DISORDER
     Dosage: 10 MG, QD
     Route: 060
     Dates: start: 201204, end: 20120606
  2. LAMICTAL [Concomitant]
     Dosage: 225 MG, QD

REACTIONS (9)
  - Delirium [Recovered/Resolved]
  - Confusional state [Recovered/Resolved]
  - Ataxia [Recovered/Resolved]
  - Disorientation [Recovered/Resolved]
  - Amnesia [Recovered/Resolved]
  - Headache [Recovered/Resolved]
  - Dizziness [Recovered/Resolved]
  - Dysarthria [Recovered/Resolved]
  - Inappropriate schedule of drug administration [Unknown]
